FAERS Safety Report 9645793 (Version 1)
Quarter: 2013Q4

REPORT INFORMATION
  Report Type: Spontaneous
  Country: GB (occurrence: GB)
  Receive Date: 20131025
  Receipt Date: 20131025
  Transmission Date: 20140711
  Serious: Yes (Life-Threatening)
  Sender: FDA-Public Use
  Company Number: GB-WATSON-2013-19272

PATIENT
  Age: 65 Year
  Sex: Male

DRUGS (7)
  1. FENTANYL CITRATE (WATSON LABORATORIES) [Suspect]
     Indication: INDUCTION OF ANAESTHESIA
     Dosage: 300 MICROGRAMS, UNKNOWN FREQUENCY; DOSAGE FORM: SOLUTION
     Route: 042
     Dates: start: 201209, end: 201209
  2. ATRACURIUM (UNKNOWN) [Suspect]
     Indication: INDUCTION OF ANAESTHESIA
     Dosage: 50 MG, UNKNOWN FREQUENCY; DOSAGE FORM: UNSPECIFIED
     Route: 042
     Dates: start: 201209, end: 201209
  3. FLUCLOXACILLIN (UNKNOWN) [Suspect]
     Indication: POSTOPERATIVE CARE
     Dosage: 1 G, UNKNOWN; DOSAGE FORM: UNSPECIFIED
     Route: 042
     Dates: start: 201209, end: 201209
  4. GENTAMICIN (UNKNOWN) [Suspect]
     Indication: POSTOPERATIVE CARE
     Dosage: 3 MG/KG, UNKNOWN; DOSAGE FORM: UNSPECIFIED
     Route: 042
     Dates: start: 201209, end: 201209
  5. CHLORHEXIDINE [Suspect]
     Indication: PRODUCT USED FOR UNKNOWN INDICATION
     Dosage: UNK; DOSAGE FORM: UNSPECIFIED
     Route: 061
     Dates: start: 201209, end: 201209
  6. MORPHINE (UNKNOWN) [Suspect]
     Indication: PRODUCT USED FOR UNKNOWN INDICATION
     Dosage: UNK; DOSAGE FORM: UNSPECIFIED
     Route: 065
  7. PROPOFOL [Suspect]
     Indication: INDUCTION OF ANAESTHESIA
     Dosage: 100 MG, UNKNOWN; DOSAGE FORM: UNSPECIFIED
     Route: 042
     Dates: start: 201209, end: 201209

REACTIONS (5)
  - Anaphylactic reaction [Recovered/Resolved]
  - Hypotension [Unknown]
  - Tachycardia [Unknown]
  - Rash [Unknown]
  - Bronchospasm [Unknown]
